FAERS Safety Report 7596329-9 (Version None)
Quarter: 2011Q3

REPORT INFORMATION
  Report Type: 
  Country: None (occurrence: None)
  Receive Date: 20110707
  Receipt Date: 20110628
  Transmission Date: 20111222
  Serious: Yes (Death)
  Sender: FDA-Public Use
  Company Number: FR-CELGENEUS-056-21880-11052769

PATIENT
  Sex: Female
  Weight: 49 kg

DRUGS (8)
  1. REVLIMID [Suspect]
     Dosage: 25 MILLIGRAM
     Route: 048
     Dates: start: 20110401
  2. DEXAMETHASONE [Concomitant]
     Route: 065
  3. BISOPROLOL FUMARATE [Concomitant]
     Route: 065
  4. RABEPRAZOLE SODIUM [Concomitant]
     Route: 065
  5. LYTOS [Concomitant]
     Route: 065
  6. BACTRIM [Concomitant]
     Route: 065
  7. PREVISCAN [Concomitant]
     Route: 065
  8. BROMAZEPAM [Concomitant]
     Route: 065

REACTIONS (4)
  - COLITIS [None]
  - DISSEMINATED INTRAVASCULAR COAGULATION [None]
  - PNEUMOTHORAX [None]
  - MULTIPLE MYELOMA [None]
